FAERS Safety Report 4994314-4 (Version None)
Quarter: 2006Q2

REPORT INFORMATION
  Report Type: 
  Country: None (occurrence: None)
  Receive Date: 20060503
  Receipt Date: 20060425
  Transmission Date: 20061013
  Serious: Yes (Other)
  Sender: FDA-Public Use
  Company Number: DE200604004125

PATIENT
  Sex: Male

DRUGS (4)
  1. YENTREVE [Suspect]
     Indication: STRESS INCONTINENCE
     Dosage: ORAL
     Route: 048
     Dates: start: 20060101
  2. SIMVASTATIN [Concomitant]
  3. AMPICILLIN SODIUM AND SULBACTAM SODIUM [Concomitant]
  4. ASPIRIN [Concomitant]

REACTIONS (7)
  - ASTIGMATISM [None]
  - COLOUR VISION TESTS ABNORMAL [None]
  - DIPLOPIA [None]
  - DIZZINESS [None]
  - PUPILLARY DISORDER [None]
  - SLEEP ATTACKS [None]
  - VISUAL DISTURBANCE [None]
